FAERS Safety Report 16937882 (Version 4)
Quarter: 2021Q1

REPORT INFORMATION
  Report Type: Report from Study
  Country: FR (occurrence: FR)
  Receive Date: 20191018
  Receipt Date: 20210111
  Transmission Date: 20210419
  Serious: Yes (Other)
  Sender: FDA-Public Use
  Company Number: FR-BAYER-2019-164946

PATIENT
  Age: 54 Year
  Sex: Female

DRUGS (6)
  1. LAROTRECTINIB [Suspect]
     Active Substance: LAROTRECTINIB
     Indication: PAPILLARY THYROID CANCER
     Dosage: 150 MG, QD
     Dates: start: 20191011
  2. ACTISKENAN [Concomitant]
     Active Substance: MORPHINE SULFATE
     Indication: PAIN
     Dosage: 20 MG, QD
     Dates: start: 20190501
  3. LAROTRECTINIB [Suspect]
     Active Substance: LAROTRECTINIB
     Indication: PAPILLARY THYROID CANCER
     Dosage: 200 MG, QD
     Dates: start: 20190814, end: 20191010
  4. LEVOTHYROX [Concomitant]
     Active Substance: LEVOTHYROXINE
     Indication: HYPOTHYROIDISM
     Dosage: 150 MCG DAILY
     Route: 048
     Dates: start: 20080101
  5. SKENAN [Concomitant]
     Active Substance: MORPHINE SULFATE
     Indication: PAIN
     Dosage: 20 MG, QD
     Dates: start: 20190501
  6. NAPROXENE BAYER 220 MG [Concomitant]
     Active Substance: NAPROXEN
     Indication: PAIN
     Dosage: 1
     Dates: start: 20190601

REACTIONS (3)
  - Hepatocellular injury [Not Recovered/Not Resolved]
  - Therapeutic product effect incomplete [None]
  - Hepatocellular injury [Not Recovered/Not Resolved]

NARRATIVE: CASE EVENT DATE: 20190829
